FAERS Safety Report 5186530-6 (Version None)
Quarter: 2006Q4

REPORT INFORMATION
  Report Type: 
  Country: None (occurrence: None)
  Receive Date: 20061213
  Receipt Date: 20061205
  Transmission Date: 20070319
  Serious: Yes (Other)
  Sender: FDA-Public Use
  Company Number: 2006149315

PATIENT
  Age: 35 Year
  Sex: Male

DRUGS (1)
  1. UNISOM [Suspect]
     Indication: MARITAL PROBLEM
     Dosage: 32 TABLETS ONCE, ORAL
     Route: 048
     Dates: start: 20061204, end: 20061204

REACTIONS (4)
  - HEART RATE INCREASED [None]
  - HYPERSOMNIA [None]
  - INTENTIONAL OVERDOSE [None]
  - REFUSAL OF TREATMENT BY PATIENT [None]
